FAERS Safety Report 23593528 (Version 1)
Quarter: 2024Q1

REPORT INFORMATION
  Report Type: Spontaneous
  Country: US (occurrence: US)
  Receive Date: 20240304
  Receipt Date: 20240304
  Transmission Date: 20240410
  Serious: No
  Sender: FDA-Public Use
  Company Number: US-INCYTE CORPORATION-2024IN001908

PATIENT

DRUGS (1)
  1. JAKAFI [Suspect]
     Active Substance: RUXOLITINIB
     Indication: Polycythaemia vera
     Dosage: 15 MILLIGRAM, BID
     Route: 048
     Dates: start: 202308

REACTIONS (6)
  - Abdominal discomfort [Unknown]
  - Dyschezia [Unknown]
  - Diarrhoea [Unknown]
  - Abnormal faeces [Unknown]
  - Constipation [Unknown]
  - Bowel movement irregularity [Unknown]
